FAERS Safety Report 10262258 (Version 2)
Quarter: 2014Q3

REPORT INFORMATION
  Report Type: Spontaneous
  Country: IT (occurrence: IT)
  Receive Date: 20140626
  Receipt Date: 20140923
  Transmission Date: 20150326
  Serious: Yes (Hospitalization)
  Sender: FDA-Public Use
  Company Number: IT-BAXTER-2014BAX032842

PATIENT
  Age: 39 Year
  Sex: Male

DRUGS (4)
  1. ENDOXAN BAXTER [Suspect]
     Active Substance: CYCLOPHOSPHAMIDE
     Indication: ACUTE LEUKAEMIA
     Route: 042
     Dates: start: 20140303, end: 20140305
  2. ZAVEDOS [Suspect]
     Active Substance: IDARUBICIN
     Indication: ACUTE LEUKAEMIA
     Route: 042
     Dates: start: 20140306, end: 20140307
  3. VINCRISTINE TEVA [Suspect]
     Active Substance: VINCRISTINE
     Indication: ACUTE LEUKAEMIA
     Route: 042
     Dates: start: 20140306, end: 20140313
  4. L-ASPARAGINASE [Suspect]
     Active Substance: ASPARAGINASE
     Indication: ACUTE LEUKAEMIA
     Route: 065

REACTIONS (2)
  - Ileus paralytic [Recovered/Resolved]
  - Febrile neutropenia [Recovered/Resolved]

NARRATIVE: CASE EVENT DATE: 20140316
